FAERS Safety Report 4801562-2 (Version None)
Quarter: 2005Q4

REPORT INFORMATION
  Report Type: 
  Country: None (occurrence: None)
  Receive Date: 20051011
  Receipt Date: 20051011
  Transmission Date: 20060501
  Serious: Yes (Other)
  Sender: FDA-Public Use
  Company Number: None

PATIENT
  Age: 49 Year
  Sex: Female
  Weight: 53.5244 kg

DRUGS (1)
  1. MORPHINE [Suspect]
     Indication: NECK PAIN
     Dosage: 60 MG TID
     Dates: start: 20041215

REACTIONS (1)
  - DRUG EFFECT DECREASED [None]
